FAERS Safety Report 8134511-2 (Version None)
Quarter: 2012Q1

REPORT INFORMATION
  Report Type: 
  Country: None (occurrence: None)
  Receive Date: 20120214
  Receipt Date: 20120209
  Transmission Date: 20120608
  Serious: Yes (Hospitalization)
  Sender: FDA-Public Use
  Company Number: GB-BRISTOL-MYERS SQUIBB COMPANY-16396368

PATIENT
  Age: 35 Year
  Sex: Male

DRUGS (1)
  1. IPILIMUMAB [Suspect]
     Dosage: RECEIVED 4 INFUSIONS
     Dates: start: 20111117

REACTIONS (3)
  - DIARRHOEA [None]
  - HEADACHE [None]
  - CONJUNCTIVITIS [None]
